FAERS Safety Report 17314877 (Version 1)
Quarter: 2020Q1

REPORT INFORMATION
  Report Type: Spontaneous
  Country: US (occurrence: US)
  Receive Date: 20200124
  Receipt Date: 20200124
  Transmission Date: 20200409
  Serious: No
  Sender: FDA-Public Use
  Company Number: US-PCCINC-2019-PEL-000209

PATIENT

DRUGS (4)
  1. GABLOFEN [Suspect]
     Active Substance: BACLOFEN
     Indication: CEREBRAL PALSY
     Dosage: 340 MICROGRAM PER DAY
     Route: 037
  2. GABLOFEN [Suspect]
     Active Substance: BACLOFEN
     Indication: QUADRIPLEGIA
     Dosage: 130 MICROGRAM PER DAY
     Route: 037
  3. GABLOFEN [Suspect]
     Active Substance: BACLOFEN
     Dosage: 180 MICROGRAM PER DAY
     Route: 037
  4. BUPIVACAINE. [Concomitant]
     Active Substance: BUPIVACAINE
     Indication: PRODUCT USED FOR UNKNOWN INDICATION
     Dosage: 6.8 MILLIGRAM PER DAY
     Route: 065

REACTIONS (8)
  - Muscle spasticity [Recovered/Resolved]
  - Underdose [Recovered/Resolved]
  - Pain [Recovered/Resolved]
  - Device issue [Recovered/Resolved]
  - Pain [Recovered/Resolved]
  - Muscle spasticity [Recovered/Resolved]
  - Device occlusion [Recovered/Resolved]
  - Drug ineffective [Recovered/Resolved]
